FAERS Safety Report 24294544 (Version 1)
Quarter: 2024Q3

REPORT INFORMATION
  Report Type: Spontaneous
  Country: US (occurrence: US)
  Receive Date: 20240906
  Receipt Date: 20240906
  Transmission Date: 20241016
  Serious: Yes (Other)
  Sender: JOHNSON AND JOHNSON
  Company Number: US-JNJFOC-20240875189

PATIENT
  Age: 32 Year
  Sex: Female

DRUGS (3)
  1. INVEGA SUSTENNA [Suspect]
     Active Substance: PALIPERIDONE PALMITATE
     Indication: Product used for unknown indication
     Route: 030
     Dates: start: 202311
  2. INVEGA SUSTENNA [Suspect]
     Active Substance: PALIPERIDONE PALMITATE
  3. INVEGA SUSTENNA [Suspect]
     Active Substance: PALIPERIDONE PALMITATE

REACTIONS (13)
  - Suicidal ideation [Unknown]
  - Angina pectoris [Unknown]
  - Alopecia [Unknown]
  - Somnolence [Unknown]
  - Cold sweat [Unknown]
  - Dry mouth [Unknown]
  - Migraine [Unknown]
  - Weight increased [Unknown]
  - Gynaecomastia [Unknown]
  - Loss of personal independence in daily activities [Recovered/Resolved]
  - Anxiety [Unknown]
  - Hair texture abnormal [Unknown]
  - Galactorrhoea [Unknown]

NARRATIVE: CASE EVENT DATE: 20231101
